FAERS Safety Report 19073152 (Version 1)
Quarter: 2021Q1

REPORT INFORMATION
  Report Type: Spontaneous
  Country: US (occurrence: US)
  Receive Date: 20210330
  Receipt Date: 20210330
  Transmission Date: 20210420
  Serious: Yes (Death, Hospitalization)
  Sender: FDA-Public Use
  Company Number: None

PATIENT
  Sex: Male
  Weight: 68.8 kg

DRUGS (2)
  1. LEUPROLIDE ACETATE. [Suspect]
     Active Substance: LEUPROLIDE ACETATE
     Dates: end: 20210126
  2. CASODEX [Suspect]
     Active Substance: BICALUTAMIDE
     Dates: end: 20210210

REACTIONS (3)
  - Bradycardia [None]
  - Pneumonia aspiration [None]
  - Septic shock [None]

NARRATIVE: CASE EVENT DATE: 20210210
